FAERS Safety Report 6076770-6 (Version None)
Quarter: 2009Q1

REPORT INFORMATION
  Report Type: 
  Country: None (occurrence: None)
  Receive Date: 20090211
  Receipt Date: 20090129
  Transmission Date: 20090719
  Serious: Yes (Other)
  Sender: FDA-Public Use
  Company Number: DSU-2009-00236

PATIENT
  Age: 46 Year
  Sex: Male
  Weight: 90.7194 kg

DRUGS (2)
  1. BENICAR [Suspect]
     Indication: HYPERTENSION
     Dosage: 20 MG (20 MG QD), PER ORAL
     Route: 048
     Dates: start: 20090128
  2. CADUET [Concomitant]

REACTIONS (2)
  - BLOOD PRESSURE ABNORMAL [None]
  - DRUG INEFFECTIVE [None]
